FAERS Safety Report 6866359-0 (Version None)
Quarter: 2010Q3

REPORT INFORMATION
  Report Type: 
  Country: None (occurrence: None)
  Receive Date: 20100722
  Receipt Date: 20100709
  Transmission Date: 20110219
  Serious: Yes (Hospitalization)
  Sender: FDA-Public Use
  Company Number: PHHY2010FR45670

PATIENT
  Sex: Male
  Weight: 93 kg

DRUGS (2)
  1. VOLTAREN [Suspect]
     Indication: BACK PAIN
     Dosage: ONE TABLET DAILY
     Route: 048
     Dates: end: 20100531
  2. DOLIPRANE [Concomitant]

REACTIONS (10)
  - BLOOD CREATINE PHOSPHOKINASE INCREASED [None]
  - BLOOD PRESSURE INCREASED [None]
  - CARDIAC MURMUR FUNCTIONAL [None]
  - DEHYDRATION [None]
  - DYSPNOEA [None]
  - FALL [None]
  - MUSCULOSKELETAL PAIN [None]
  - RENAL FAILURE ACUTE [None]
  - RHABDOMYOLYSIS [None]
  - TROPONIN INCREASED [None]
